FAERS Safety Report 19923445 (Version 3)
Quarter: 2021Q4

REPORT INFORMATION
  Report Type: Report from Study
  Country: GB (occurrence: GB)
  Receive Date: 20211005
  Receipt Date: 20211218
  Transmission Date: 20220303
  Serious: Yes (Other)
  Sender: FDA-Public Use
  Company Number: NVSC2021GB221437

PATIENT
  Age: 63 Year
  Sex: Male

DRUGS (1)
  1. ERELZI [Suspect]
     Active Substance: ETANERCEPT-SZZS
     Indication: Product used for unknown indication
     Dosage: 50 MG, QW
     Route: 058

REACTIONS (2)
  - Condition aggravated [Not Recovered/Not Resolved]
  - Grip strength decreased [Not Recovered/Not Resolved]

NARRATIVE: CASE EVENT DATE: 20210923
